FAERS Safety Report 9764543 (Version 2)
Quarter: 2015Q2

REPORT INFORMATION
  Report Type: Spontaneous
  Country: FR (occurrence: FR)
  Receive Date: 20131217
  Receipt Date: 20150619
  Transmission Date: 20150821
  Serious: Yes (Other)
  Sender: FDA-Public Use
  Company Number: FR-RANBAXY-2013R1-75974

PATIENT
  Age: 35 Year
  Sex: Female
  Weight: 57 kg

DRUGS (1)
  1. NAPROXEN. [Suspect]
     Active Substance: NAPROXEN
     Indication: PAIN PROPHYLAXIS
     Dosage: UNK
     Route: 065

REACTIONS (1)
  - Acute kidney injury [Unknown]
